FAERS Safety Report 9369436 (Version 1)
Quarter: 2013Q2

REPORT INFORMATION
  Report Type: Spontaneous
  Country: JP (occurrence: None)
  Receive Date: 20130621
  Receipt Date: 20130621
  Transmission Date: 20140414
  Serious: Yes (Other)
  Sender: FDA-Public Use
  Company Number: TCI2013A03403

PATIENT
  Age: 73 Year
  Sex: Male

DRUGS (1)
  1. NESINA [Suspect]
     Route: 048
     Dates: start: 201202, end: 201207

REACTIONS (1)
  - Stevens-Johnson syndrome [None]
